FAERS Safety Report 5731461-3 (Version None)
Quarter: 2008Q2

REPORT INFORMATION
  Report Type: 
  Country: None (occurrence: None)
  Receive Date: 20080506
  Receipt Date: 20080506
  Transmission Date: 20081010
  Serious: Yes (Hospitalization)
  Sender: FDA-Public Use
  Company Number: None

PATIENT
  Age: 66 Year
  Sex: Male
  Weight: 73.9363 kg

DRUGS (11)
  1. PEG-INTERFERON ALPHA-2A 180 MCG/0.5 ML ROCHE [Suspect]
     Indication: DISEASE RECURRENCE
     Dosage: 180 MCQ ONCE A WEEK SQ
     Route: 058
     Dates: start: 20080124, end: 20080428
  2. PEG-INTERFERON ALPHA-2A 180 MCG/0.5 ML ROCHE [Suspect]
     Indication: HEPATITIS C
     Dosage: 180 MCQ ONCE A WEEK SQ
     Route: 058
     Dates: start: 20080124, end: 20080428
  3. RIBAVIRIN [Suspect]
     Indication: DISEASE RECURRENCE
     Dosage: 600 MG TWICE A DAY PO
     Route: 048
     Dates: start: 20080124, end: 20080505
  4. RIBAVIRIN [Suspect]
     Indication: HEPATITIS C
     Dosage: 600 MG TWICE A DAY PO
     Route: 048
     Dates: start: 20080124, end: 20080505
  5. PROSCAR [Concomitant]
  6. CARDURA [Concomitant]
  7. OXYBUTIN [Concomitant]
  8. OMEPRAZOLE [Concomitant]
  9. ENALAPRIL MALEATE [Concomitant]
  10. FLUOXYMESTERONE [Concomitant]
  11. LEXAPRO [Concomitant]

REACTIONS (9)
  - CEREBELLAR HAEMORRHAGE [None]
  - CEREBELLAR INFARCTION [None]
  - CEREBRAL ISCHAEMIA [None]
  - CEREBROVASCULAR ACCIDENT [None]
  - FALL [None]
  - JOINT DISLOCATION [None]
  - LACUNAR INFARCTION [None]
  - SHOULDER DEFORMITY [None]
  - SYNCOPE [None]
